FAERS Safety Report 5766179-4 (Version None)
Quarter: 2008Q2

REPORT INFORMATION
  Report Type: 
  Country: None (occurrence: None)
  Receive Date: 20080609
  Receipt Date: 20080501
  Transmission Date: 20081010
  Serious: No
  Sender: FDA-Public Use
  Company Number: 002#2#2008-00362

PATIENT
  Age: 77 Year
  Sex: Female
  Weight: 150 kg

DRUGS (6)
  1. NEUPRO [Suspect]
     Indication: PARKINSON'S DISEASE
     Dosage: 4MG/24H,1 IN 1 D,TRANSDERMAL ; 6MG/24H,1 IN 1 D,TRANSDERMAL
     Route: 062
     Dates: start: 20070301, end: 20070301
  2. NEUPRO [Suspect]
     Indication: PARKINSON'S DISEASE
     Dosage: 4MG/24H,1 IN 1 D,TRANSDERMAL ; 6MG/24H,1 IN 1 D,TRANSDERMAL
     Route: 062
     Dates: start: 20070301, end: 20080101
  3. SINEMET [Concomitant]
  4. PLAVIX [Concomitant]
  5. PRAVACHOL [Concomitant]
  6. ASPIRIN [Concomitant]

REACTIONS (2)
  - APPLICATION SITE RASH [None]
  - APPLICATION SITE REACTION [None]
